FAERS Safety Report 11442795 (Version 1)
Quarter: 2015Q3

REPORT INFORMATION
  Report Type: Spontaneous
  Country: US (occurrence: US)
  Receive Date: 20150901
  Receipt Date: 20150901
  Transmission Date: 20151125
  Serious: Yes (Hospitalization)
  Sender: FDA-Public Use
  Company Number: US-BAYER-2015-408160

PATIENT
  Sex: Female

DRUGS (1)
  1. MAGNEVIST [Suspect]
     Active Substance: GADOPENTETATE DIMEGLUMINE
     Indication: ANGIOGRAM
     Dosage: 30 ML, ONCE
     Route: 042
     Dates: start: 20150824, end: 20150824

REACTIONS (5)
  - Throat irritation [Recovering/Resolving]
  - Oral pruritus [Recovering/Resolving]
  - Lip pruritus [Recovering/Resolving]
  - Erythema [Recovering/Resolving]
  - Swelling face [Recovering/Resolving]

NARRATIVE: CASE EVENT DATE: 20150824
